FAERS Safety Report 10815094 (Version 1)
Quarter: 2015Q1

REPORT INFORMATION
  Report Type: Spontaneous
  Country: US (occurrence: US)
  Receive Date: 20150218
  Receipt Date: 20150218
  Transmission Date: 20150721
  Serious: Yes (Hospitalization, Other)
  Sender: FDA-Public Use
  Company Number: US-UCBSA-2015004000

PATIENT
  Sex: Female

DRUGS (6)
  1. RANITIDINE [Concomitant]
     Active Substance: RANITIDINE\RANITIDINE HYDROCHLORIDE
     Indication: PRODUCT USED FOR UNKNOWN INDICATION
     Dosage: UNK
  2. VIMPAT [Suspect]
     Active Substance: LACOSAMIDE
     Indication: SEIZURE
     Dosage: 100 MG, 2X/DAY (BID)
  3. TEGRETOL [Concomitant]
     Active Substance: CARBAMAZEPINE
     Indication: SEIZURE
     Dosage: 200 MG, 3X/DAY (TID)
  4. EXCEDRIN MIGRAINE [Concomitant]
     Active Substance: ACETAMINOPHEN\ASPIRIN\CAFFEINE
     Indication: HEADACHE
     Dosage: UNK
  5. PERCOCET [Concomitant]
     Active Substance: ACETAMINOPHEN\OXYCODONE HYDROCHLORIDE
     Indication: PRODUCT USED FOR UNKNOWN INDICATION
     Dosage: UNK, AS NEEDED (PRN)
  6. KEPPRA [Suspect]
     Active Substance: LEVETIRACETAM
     Indication: SEIZURE
     Dosage: 1000 MG, 2X/DAY (BID)

REACTIONS (11)
  - Fall [Unknown]
  - Respiratory failure [Recovered/Resolved]
  - Headache [Unknown]
  - Subdural haematoma [Recovered/Resolved]
  - Dysphagia [Recovered/Resolved]
  - Muscular weakness [Unknown]
  - Tremor [Unknown]
  - Jaw fracture [Unknown]
  - Laceration [Unknown]
  - Subarachnoid haemorrhage [Recovered/Resolved]
  - Dizziness [Unknown]

NARRATIVE: CASE EVENT DATE: 2013
